FAERS Safety Report 5169613-6 (Version None)
Quarter: 2006Q4

REPORT INFORMATION
  Report Type: 
  Country: None (occurrence: None)
  Receive Date: 20060918
  Receipt Date: 20060804
  Transmission Date: 20070319
  Serious: Yes (Hospitalization)
  Sender: FDA-Public Use
  Company Number: US-JNJFOC-20060601132

PATIENT
  Age: 26 Year
  Sex: Female
  Weight: 75.7507 kg

DRUGS (2)
  1. ORTHO EVRA [Suspect]
     Indication: DRUG USE FOR UNKNOWN INDICATION
     Dosage: TRANSDERMAL
     Route: 062
  2. HYDROCHLOROTHIAZIDE [Concomitant]

REACTIONS (5)
  - ANAEMIA [None]
  - DEEP VEIN THROMBOSIS [None]
  - HYPERGLYCAEMIA [None]
  - HYPOCALCAEMIA [None]
  - HYPOKALAEMIA [None]
